FAERS Safety Report 7185511 (Version 4)
Quarter: 2020Q1

REPORT INFORMATION
  Report Type: Spontaneous
  Country: NL (occurrence: NL)
  Receive Date: 20091123
  Receipt Date: 20200206
  Transmission Date: 20200409
  Serious: Yes (Hospitalization, Other)
  Sender: FDA-Public Use
  Company Number: NL-MYLANLABS-2009S1019644

PATIENT
  Age: 61 Year
  Sex: Female

DRUGS (15)
  1. FUROSEMIDE ACTAVIS [Concomitant]
     Indication: PRODUCT USED FOR UNKNOWN INDICATION
     Dosage: 40/ 12.5MG DAILY
  2. CARVEDILOL SANDOZ [Concomitant]
     Active Substance: CARVEDILOL
     Dosage: CARVEDILOL MG 1 DD 1
     Route: 048
  3. GLIMEPIRIDE SANDOZ [Concomitant]
     Active Substance: GLIMEPIRIDE
     Dosage: GLIMEPIRIDE 2 MG 1 DD 1
     Route: 048
  4. OMEPRAZOLE. [Suspect]
     Active Substance: OMEPRAZOLE
     Indication: PROPHYLAXIS
  5. SPIRONOLACTONE. [Concomitant]
     Active Substance: SPIRONOLACTONE
     Dosage: SPIRONOLACTON 12,5 MG 1 DD 1
     Route: 048
  6. ENALAPRIL SANDOZ [Concomitant]
     Active Substance: ENALAPRIL
     Dosage: ENALAPRIL 5 MG 1 DD 1
     Route: 048
  7. OMEPRAZOLE. [Suspect]
     Active Substance: OMEPRAZOLE
     Indication: DYSPEPSIA
     Dosage: 40 MG,QD (40MG PER DAY FOR 9 YEARS)
     Route: 048
     Dates: start: 2000, end: 20090325
  8. LIPITOR [Concomitant]
     Active Substance: ATORVASTATIN CALCIUM
     Dosage: 40 MILLIGRAM, QD
     Route: 048
  9. CALCI CHEW D3 [Concomitant]
     Active Substance: CALCIUM CARBONATE\CHOLECALCIFEROL
     Dosage: CALCICHEW D3 1 DD 1
     Route: 048
  10. SPIRONOLACTONE. [Concomitant]
     Active Substance: SPIRONOLACTONE
     Indication: PRODUCT USED FOR UNKNOWN INDICATION
     Dosage: 40/12.5 MG
     Route: 065
  11. FUROSEMIDE ACTAVIS [Concomitant]
     Dosage: FUROSEMIDE 40 MG 1 DD 1
     Route: 048
  12. ASCAL                              /00800002/ [Concomitant]
     Active Substance: CARBASPIRIN
     Dosage: 100 MILLIGRAM, QD
     Route: 048
  13. METFORMIN [Concomitant]
     Active Substance: METFORMIN HYDROCHLORIDE
     Dosage: METFORMINE 500 MG 3 DD 1
     Route: 048
  14. PLAQUENIL                          /00072602/ [Concomitant]
     Active Substance: HYDROXYCHLOROQUINE DIPHOSPHATE
     Dosage: 200 MILLIGRAM, QD
     Route: 048
  15. MAGNESIUM [Concomitant]
     Active Substance: MAGNESIUM
     Indication: PRODUCT USED FOR UNKNOWN INDICATION
     Dosage: 30 MMOL, Q12H
     Route: 042

REACTIONS (6)
  - Nausea [Recovered/Resolved]
  - Hypokalaemia [Recovered/Resolved]
  - Hypoparathyroidism [Recovered/Resolved]
  - Hypocalcaemia [Recovered/Resolved]
  - Hypomagnesaemia [Recovered/Resolved]
  - Vomiting [Recovered/Resolved]

NARRATIVE: CASE EVENT DATE: 2009
